FAERS Safety Report 6860018-6 (Version None)
Quarter: 2010Q3

REPORT INFORMATION
  Report Type: 
  Country: None (occurrence: None)
  Receive Date: 20100720
  Receipt Date: 20100708
  Transmission Date: 20110219
  Serious: Yes (Other)
  Sender: FDA-Public Use
  Company Number: RU-PFIZER INC-2010085113

PATIENT
  Age: 77 Year
  Sex: Female

DRUGS (4)
  1. XALATAN [Suspect]
     Indication: GLAUCOMA
     Dosage: 1 DROP INTO EACH EYE BEFORE NIGHT
     Route: 047
     Dates: start: 20070101
  2. INDAPAMIDE [Concomitant]
     Indication: ARRHYTHMIA
     Dosage: 1.5 MG, 1X/DAY
     Route: 048
  3. METOPROLOL [Concomitant]
     Indication: ARRHYTHMIA
     Dosage: 50 MG, 2X/DAY
     Route: 048
  4. DIGOXIN [Concomitant]
     Indication: ARRHYTHMIA
     Dosage: 1/4 OF TABLET AS NEEDED

REACTIONS (4)
  - EYE OEDEMA [None]
  - EYELID OEDEMA [None]
  - RASH [None]
  - SKIN DISCOLOURATION [None]
